FAERS Safety Report 4549468-0 (Version None)
Quarter: 2005Q1

REPORT INFORMATION
  Report Type: 
  Country: None (occurrence: None)
  Receive Date: 20050106
  Receipt Date: 20041223
  Transmission Date: 20050727
  Serious: Yes (Death, Hospitalization)
  Sender: FDA-Public Use
  Company Number: 2004-0007882

PATIENT
  Age: 44 Year
  Sex: Male
  Weight: 50 kg

DRUGS (3)
  1. VIREAD [Suspect]
     Indication: HIV INFECTION
     Dosage: 300 MG, 1 IN 1D, ORAL
     Route: 048
     Dates: start: 20030301, end: 20041110
  2. KALETRA [Suspect]
     Indication: HIV INFECTION
     Dosage: 5 DOSAGE FORMS, 1 IN 1 D, ORAL
     Route: 048
     Dates: start: 20030301, end: 20041110
  3. DIDANOSINE [Suspect]
     Indication: HIV INFECTION
     Dosage: 50 MG, 1 IN 1 D, ORAL
     Route: 048
     Dates: start: 20040301, end: 20041110

REACTIONS (3)
  - LACTIC ACIDOSIS [None]
  - LIVER DISORDER [None]
  - RENAL FAILURE CHRONIC [None]
